FAERS Safety Report 24201591 (Version 1)
Quarter: 2024Q3

REPORT INFORMATION
  Report Type: Spontaneous
  Country: US (occurrence: None)
  Receive Date: 20240811
  Receipt Date: 20240811
  Transmission Date: 20241016
  Serious: Yes (Other)
  Sender: Public
  Company Number: None

PATIENT
  Age: 52 Year
  Sex: Female
  Weight: 87.75 kg

DRUGS (7)
  1. CONTRAVE [Suspect]
     Active Substance: BUPROPION HYDROCHLORIDE\NALTREXONE HYDROCHLORIDE
     Indication: Weight decreased
     Dosage: 1 CAQPSULE GRADUAL RAMP ORAL?
     Route: 048
     Dates: start: 20240320, end: 20240522
  2. ZYRTEC [Concomitant]
     Active Substance: CETIRIZINE HYDROCHLORIDE
  3. SINGULAIR [Concomitant]
     Active Substance: MONTELUKAST SODIUM
  4. CELEBREX [Concomitant]
     Active Substance: CELECOXIB
  5. VITAMIN D [Concomitant]
     Active Substance: VITAMIN D NOS
  6. IRON [Concomitant]
     Active Substance: IRON
  7. mangesium [Concomitant]

REACTIONS (4)
  - Asthenia [None]
  - Gait inability [None]
  - Movement disorder [None]
  - Speech disorder [None]

NARRATIVE: CASE EVENT DATE: 20240502
